FAERS Safety Report 11137032 (Version 1)
Quarter: 2015Q2

REPORT INFORMATION
  Report Type: Report from Study
  Country: CA (occurrence: CA)
  Receive Date: 20150526
  Receipt Date: 20150526
  Transmission Date: 20150821
  Serious: Yes (Hospitalization, Other)
  Sender: FDA-Public Use
  Company Number: CA-AMGEN-CANSP2013043651

PATIENT
  Age: 53 Year
  Sex: Female

DRUGS (5)
  1. ASPIRIN                            /00002701/ [Concomitant]
     Active Substance: ASPIRIN
     Dosage: UNK
  2. CLOPIDOGREL [Concomitant]
     Active Substance: CLOPIDOGREL BISULFATE
     Dosage: 75 MG, UNK
  3. CALCIUM + VITAMIN D                /01483701/ [Concomitant]
     Active Substance: CALCIUM\VITAMIN D
     Dosage: UNK
  4. DEXILANT [Concomitant]
     Active Substance: DEXLANSOPRAZOLE
     Dosage: 60 MG, UNK
  5. PROLIA [Suspect]
     Active Substance: DENOSUMAB
     Indication: OSTEOPOROSIS POSTMENOPAUSAL
     Dosage: 60 MG, Q6MO
     Route: 058
     Dates: start: 20121029

REACTIONS (14)
  - Muscle spasms [Unknown]
  - Hypoaesthesia [Unknown]
  - Monoplegia [Unknown]
  - Iron metabolism disorder [Unknown]
  - Burning sensation [Unknown]
  - Anaemia [Unknown]
  - Morton^s neuralgia [Unknown]
  - Fatigue [Unknown]
  - Pain in extremity [Unknown]
  - Transient ischaemic attack [Unknown]
  - Paraesthesia [Unknown]
  - Malaise [Unknown]
  - Middle insomnia [Unknown]
  - Paraesthesia oral [Unknown]

NARRATIVE: CASE EVENT DATE: 2014
